FAERS Safety Report 7980139-4 (Version None)
Quarter: 2011Q4

REPORT INFORMATION
  Report Type: 
  Country: None (occurrence: None)
  Receive Date: 20111214
  Receipt Date: 20111205
  Transmission Date: 20120403
  Serious: Yes (Hospitalization, Other)
  Sender: FDA-Public Use
  Company Number: US-ROCHE-1008825

PATIENT
  Sex: Female

DRUGS (1)
  1. ZELBORAF [Suspect]
     Indication: PRODUCT USED FOR UNKNOWN INDICATION

REACTIONS (10)
  - CHEST DISCOMFORT [None]
  - ACNE [None]
  - MASS [None]
  - MELANOCYTIC NAEVUS [None]
  - SKIN PAPILLOMA [None]
  - PNEUMONIA [None]
  - EPHELIDES [None]
  - BLOOD PRESSURE INCREASED [None]
  - DYSPNOEA [None]
  - SCAB [None]
